FAERS Safety Report 24157609 (Version 1)
Quarter: 2024Q3

REPORT INFORMATION
  Report Type: Spontaneous
  Country: US (occurrence: US)
  Receive Date: 20240731
  Receipt Date: 20240731
  Transmission Date: 20241017
  Serious: Yes (Hospitalization)
  Sender: TEVA
  Company Number: US-TEVA-VS-3225471

PATIENT
  Age: 13 Year
  Sex: Male

DRUGS (7)
  1. CARBOPLATIN [Suspect]
     Active Substance: CARBOPLATIN
     Indication: Ependymoma
     Route: 013
  2. SALINE [Concomitant]
     Active Substance: SODIUM CHLORIDE
     Indication: Fluid replacement
     Dosage: FOR MINIMUM OF 6H
     Route: 065
  3. PROPOFOL [Concomitant]
     Active Substance: PROPOFOL
     Indication: General anaesthesia
     Dosage: ON 2?CONSECUTIVE DAYS EVERY 4?WEEKS FOR UP TO 1?YEAR
     Route: 042
  4. ATROPINE [Concomitant]
     Active Substance: ATROPINE
     Indication: Prophylaxis
     Route: 065
  5. MANNITOL [Concomitant]
     Active Substance: MANNITOL
     Indication: Blood brain barrier disruption therapy
     Dosage: AT A RATE OF 4-10 ML/S FOR 30 SECONDS
     Route: 013
  6. DEXTROSE [Concomitant]
     Active Substance: DEXTROSE\DEXTROSE MONOHYDRATE
     Indication: Fluid replacement
     Route: 065
  7. SODIUM THIOSULFATE [Concomitant]
     Active Substance: SODIUM THIOSULFATE
     Indication: Prophylaxis
     Route: 042

REACTIONS (1)
  - Spinal cord injury cervical [Unknown]
